FAERS Safety Report 4450386-7 (Version None)
Quarter: 2004Q3

REPORT INFORMATION
  Report Type: 
  Country: None (occurrence: None)
  Receive Date: 20040915
  Receipt Date: 20040906
  Transmission Date: 20050211
  Serious: Yes (Hospitalization, Other)
  Sender: FDA-Public Use
  Company Number: JP-MERCK-0409USA00719

PATIENT
  Age: 75 Year
  Sex: Male

DRUGS (8)
  1. BLOPRESS [Concomitant]
     Route: 048
  2. ATELEC [Concomitant]
     Route: 048
  3. TETRAMIDE [Concomitant]
     Route: 048
  4. SERMION [Concomitant]
     Route: 048
  5. ZOCOR [Suspect]
     Indication: HYPERLIPIDAEMIA
     Route: 048
     Dates: start: 19960101
  6. TRIAZOLAM [Concomitant]
     Route: 065
     Dates: end: 20040101
  7. BASEN [Concomitant]
     Route: 048
  8. AMOBAN [Concomitant]
     Route: 048

REACTIONS (7)
  - ASTHENIA [None]
  - BLOOD CREATINE PHOSPHOKINASE INCREASED [None]
  - DEMENTIA [None]
  - DIARRHOEA [None]
  - DIFFICULTY IN WALKING [None]
  - GAMMA-GLUTAMYLTRANSFERASE INCREASED [None]
  - HYPOKALAEMIA [None]
